FAERS Safety Report 15391691 (Version 1)
Quarter: 2018Q3

REPORT INFORMATION
  Report Type: Spontaneous
  Country: ES (occurrence: ES)
  Receive Date: 20180917
  Receipt Date: 20180917
  Transmission Date: 20181010
  Serious: Yes (Life-Threatening, Other)
  Sender: FDA-Public Use
  Company Number: PHHY2018ES100421

PATIENT
  Age: 58 Year
  Sex: Male

DRUGS (19)
  1. FUROSEMIDE. [Suspect]
     Active Substance: FUROSEMIDE
     Indication: PRODUCT USED FOR UNKNOWN INDICATION
     Dosage: 40 MG, UNK
     Route: 048
     Dates: start: 20180724, end: 20180816
  2. PARACETAMOL [Concomitant]
     Active Substance: ACETAMINOPHEN
     Indication: PYREXIA
     Route: 042
     Dates: start: 20180722, end: 20180725
  3. LORMETAZEPAM [Concomitant]
     Active Substance: LORMETAZEPAM
     Indication: PRODUCT USED FOR UNKNOWN INDICATION
     Route: 048
  4. NERDIPINA [Concomitant]
     Indication: HYPERTENSION
     Dosage: 20 MG, UNK
     Route: 048
     Dates: start: 201807, end: 20180816
  5. KONAKION [Concomitant]
     Active Substance: PHYTONADIONE
     Indication: PRODUCT USED FOR UNKNOWN INDICATION
     Route: 042
  6. INSULINA [Concomitant]
     Active Substance: INSULIN NOS
     Indication: PRODUCT USED FOR UNKNOWN INDICATION
     Dosage: INSULINA R?PIDA EN SUEROS
     Route: 042
  7. CLEXANE [Concomitant]
     Active Substance: ENOXAPARIN SODIUM
     Indication: PRODUCT USED FOR UNKNOWN INDICATION
     Route: 058
  8. OMEPRAZOL [Concomitant]
     Active Substance: OMEPRAZOLE
     Indication: PRODUCT USED FOR UNKNOWN INDICATION
     Route: 065
  9. VANCOMICINA [Interacting]
     Active Substance: VANCOMYCIN
     Indication: PANCREATITIS ACUTE
     Dosage: 1 G, Q12H
     Route: 042
     Dates: start: 20180731, end: 20180816
  10. PRIMPERAN [Concomitant]
     Active Substance: METOCLOPRAMIDE HYDROCHLORIDE
     Indication: PRODUCT USED FOR UNKNOWN INDICATION
     Route: 042
  11. IMIPENEM+CILASTATIN SODIUM [Interacting]
     Active Substance: CILASTATIN SODIUM\IMIPENEM
     Indication: PANCREATITIS ACUTE
     Dosage: PRIMERO CADA 6 HORAS, EL 16/08/2018 CADA 8 HORAS Y EL 17/08/2018 CADA 12 HORAS
     Route: 042
     Dates: start: 20180721, end: 20180823
  12. AMOXICILLIN CLAVULANIC ACID [Concomitant]
     Active Substance: AMOXICILLIN\CLAVULANIC ACID
     Indication: PRODUCT USED FOR UNKNOWN INDICATION
     Route: 042
     Dates: start: 20180719, end: 20180719
  13. FLUOXETINA [Concomitant]
     Active Substance: FLUOXETINE HYDROCHLORIDE
     Indication: PRODUCT USED FOR UNKNOWN INDICATION
     Route: 048
  14. NOLOTIL [Concomitant]
     Indication: PRODUCT USED FOR UNKNOWN INDICATION
     Route: 042
  15. ADOLONTA [Concomitant]
     Active Substance: TRAMADOL HYDROCHLORIDE
     Indication: PRODUCT USED FOR UNKNOWN INDICATION
     Route: 042
  16. CORENITEC [Interacting]
     Active Substance: ENALAPRIL\HYDROCHLOROTHIAZIDE
     Indication: HYPERTENSION
     Dosage: 1 DF, UNK
     Route: 048
     Dates: start: 20180721, end: 20180816
  17. GASTROGRAFIN [Interacting]
     Active Substance: DIATRIZOATE MEGLUMINE\DIATRIZOATE SODIUM
     Indication: COMPUTERISED TOMOGRAM ABDOMEN
     Dosage: PARA LA REALIZACI?N DE VARIOS TAC ABDOMINALES
     Route: 048
  18. FLUCONAZOL [Concomitant]
     Active Substance: FLUCONAZOLE
     Indication: PRODUCT USED FOR UNKNOWN INDICATION
     Route: 042
  19. PIPERACILINA+TAZOBACTAM [Concomitant]
     Active Substance: PIPERACILLIN SODIUM\TAZOBACTAM SODIUM
     Indication: PANCREATITIS ACUTE
     Dosage: 4G/500 MG (6H)
     Route: 042
     Dates: start: 20180721, end: 20180721

REACTIONS (1)
  - Nephropathy toxic [Unknown]

NARRATIVE: CASE EVENT DATE: 20180815
